FAERS Safety Report 22236015 (Version 1)
Quarter: 2023Q2

REPORT INFORMATION
  Report Type: Spontaneous
  Country: US (occurrence: US)
  Receive Date: 20230420
  Receipt Date: 20230420
  Transmission Date: 20230722
  Serious: No
  Sender: FDA-Public Use
  Company Number: US-PFIZER INC-PV202300070873

PATIENT
  Sex: Female

DRUGS (2)
  1. RIMEGEPANT [Suspect]
     Active Substance: RIMEGEPANT
     Indication: Migraine
     Dosage: UNK, 1X/DAY (DOSE TO ONCE DAILY FOR THE 1-2 DAYS )
  2. RIMEGEPANT [Suspect]
     Active Substance: RIMEGEPANT
     Dosage: 1 DF, 1X/DAY (INCREASE DOSE TO ONCE DAILY FOR THE 1-2 DAYS PRIOR TO MENSES AND THEN CONTINUED THROUG

REACTIONS (2)
  - Drug ineffective [Unknown]
  - Off label use [Unknown]
